FAERS Safety Report 24421337 (Version 1)
Quarter: 2024Q4

REPORT INFORMATION
  Report Type: Report from Study
  Country: US (occurrence: US)
  Receive Date: 20241010
  Receipt Date: 20241010
  Transmission Date: 20250114
  Serious: Yes (Hospitalization)
  Sender: ROCHE
  Company Number: US-ROCHE-10000096643

PATIENT
  Age: 56 Year
  Sex: Female

DRUGS (5)
  1. OCREVUS [Suspect]
     Active Substance: OCRELIZUMAB
     Indication: Relapsing multiple sclerosis
     Route: 065
     Dates: start: 20240919
  2. MONTELUKAST [Concomitant]
     Active Substance: MONTELUKAST
  3. ATORVASTATIN [Concomitant]
     Active Substance: ATORVASTATIN
  4. AMPYRA [Concomitant]
     Active Substance: DALFAMPRIDINE
  5. GABAPENTIN [Concomitant]
     Active Substance: GABAPENTIN

REACTIONS (1)
  - Localised infection [Unknown]
